FAERS Safety Report 8858925 (Version 1)
Quarter: 2012Q4

REPORT INFORMATION
  Report Type: 
  Country: US (occurrence: US)
  Receive Date: 20121024
  Receipt Date: 20121024
  Transmission Date: 20130627
  Serious: No
  Sender: FDA-Public Use
  Company Number: US-TEVA-366084USA

PATIENT
  Age: 71 Year
  Sex: Female

DRUGS (13)
  1. QNASL [Suspect]
     Dates: start: 20121019
  2. CLARITHROMYCIN [Concomitant]
  3. NORTRIPTYLINE [Concomitant]
  4. LEVOTHYROXINE [Concomitant]
  5. PERPHENAZINE [Concomitant]
  6. SIMVASTATIN [Concomitant]
  7. BENZTROPINE MESYLATE [Concomitant]
  8. LITHIUM [Concomitant]
  9. VERAPAMIL [Concomitant]
  10. PREDNISONE [Concomitant]
  11. ADVAIR [Concomitant]
     Dosage: 250/50
  12. HYDROXYCHLOROQUINE [Concomitant]
  13. TYLENOL [Concomitant]

REACTIONS (3)
  - Nasal congestion [Unknown]
  - Dry mouth [Unknown]
  - Drug ineffective [Unknown]
